FAERS Safety Report 12613883 (Version 1)
Quarter: 2016Q3

REPORT INFORMATION
  Report Type: Spontaneous
  Country: US (occurrence: None)
  Receive Date: 20160801
  Receipt Date: 20160801
  Transmission Date: 20161109
  Serious: Yes (Other)
  Sender: FDA-Public Use
  Company Number: None

PATIENT
  Age: 51 Year
  Sex: Female
  Weight: 63.7 kg

DRUGS (1)
  1. INFLIXIMAB [Suspect]
     Active Substance: INFLIXIMAB
     Indication: PSORIATIC ARTHROPATHY
     Dosage: LAST DOSE 12/2015, THIS WAS THE 3RD AND FINAL DOSE

REACTIONS (2)
  - Skin hypertrophy [None]
  - Skin tightness [None]

NARRATIVE: CASE EVENT DATE: 201601
